FAERS Safety Report 20212809 (Version 1)
Quarter: 2021Q4

REPORT INFORMATION
  Report Type: Spontaneous
  Country: US (occurrence: US)
  Receive Date: 20211221
  Receipt Date: 20211221
  Transmission Date: 20220304
  Serious: Yes (Disabling, Other)
  Sender: FDA-Public Use
  Company Number: US-Fresenius Kabi-FK202114254

PATIENT
  Age: 27 Year
  Sex: Male

DRUGS (1)
  1. GENTAMICIN [Suspect]
     Active Substance: GENTAMICIN
     Indication: Product used for unknown indication
     Route: 065

REACTIONS (6)
  - End stage renal disease [Not Recovered/Not Resolved]
  - Cardiac failure congestive [Unknown]
  - Arrhythmia [Unknown]
  - Pulmonary calcification [Not Recovered/Not Resolved]
  - Calcification metastatic [Not Recovered/Not Resolved]
  - Nephropathy toxic [Not Recovered/Not Resolved]
